FAERS Safety Report 15811075 (Version 1)
Quarter: 2019Q1

REPORT INFORMATION
  Report Type: Report from Study
  Country: TR (occurrence: TR)
  Receive Date: 20190111
  Receipt Date: 20190111
  Transmission Date: 20190417
  Serious: Yes (Other)
  Sender: FDA-Public Use
  Company Number: TR-SUN PHARMACEUTICAL INDUSTRIES LTD-2018RR-195814

PATIENT
  Age: 33 Year
  Sex: Female

DRUGS (6)
  1. EPOETIN BETA [Suspect]
     Active Substance: ERYTHROPOIETIN
     Indication: RENAL FAILURE
     Dosage: 100 MICROGRAM, MONTHLY, ON WEEK 0-5
     Route: 048
  2. ASPIRIN. [Suspect]
     Active Substance: ASPIRIN
     Indication: RENAL FAILURE
     Dosage: 300 MILLIGRAM, DAILY, ON WEEK 0-5
     Route: 065
  3. CALCIUM ACETATE. [Suspect]
     Active Substance: CALCIUM ACETATE
     Indication: RENAL FAILURE
     Dosage: 750 MILLIGRAM, DAILY, ON WEEK 0-5
     Route: 065
  4. ATORVASTATIN [Suspect]
     Active Substance: ATORVASTATIN
     Indication: HYPERTENSION
     Dosage: 80 MILLIGRAM, DAILY, ON WEEKS 0-5 AFTER LAST MENSTRUAL PERIOD
     Route: 048
  5. CARNITINE [Suspect]
     Active Substance: CARNITINE
     Indication: RENAL FAILURE
     Dosage: 3 GRAM, WEEKLY, ON WEEK 0-5
     Route: 065
  6. PARICALCITOL. [Suspect]
     Active Substance: PARICALCITOL
     Indication: RENAL FAILURE
     Dosage: 15 MICROGRAM, WEEKLY, ON WEEK 0-5
     Route: 065

REACTIONS (2)
  - Exposure during pregnancy [Unknown]
  - Abortion spontaneous [Unknown]
